FAERS Safety Report 6750465-5 (Version None)
Quarter: 2010Q2

REPORT INFORMATION
  Report Type: 
  Country: None (occurrence: None)
  Receive Date: 20100527
  Receipt Date: 20100514
  Transmission Date: 20101027
  Serious: Yes (Other)
  Sender: FDA-Public Use
  Company Number: CO-000358

PATIENT
  Sex: Male

DRUGS (1)
  1. NAGLAZYME [Suspect]
     Indication: MUCOPOLYSACCHARIDOSIS VI
     Dosage: 20 MG 1X/WEEK INTRAVENOUS DRIP
     Route: 041
     Dates: start: 20071101

REACTIONS (2)
  - CONVULSION [None]
  - PNEUMONIA [None]
